FAERS Safety Report 20657322 (Version 1)
Quarter: 2022Q1

REPORT INFORMATION
  Report Type: Spontaneous
  Country: US (occurrence: US)
  Receive Date: 20220331
  Receipt Date: 20220331
  Transmission Date: 20220423
  Serious: Yes (Other)
  Sender: FDA-Public Use
  Company Number: US-AVEO ONCOLOGY-2022-AVEO-US000090

PATIENT

DRUGS (6)
  1. FOTIVDA [Suspect]
     Active Substance: TIVOZANIB HYDROCHLORIDE
     Indication: Renal cell carcinoma
     Dosage: 1.34 MG, DAILY 3W, 1W OFF
     Route: 048
     Dates: start: 20211213, end: 20220316
  2. CEFUROXIME [Concomitant]
     Active Substance: CEFUROXIME
  3. METHADONE [Concomitant]
     Active Substance: METHADONE HYDROCHLORIDE
  4. NIFEDIPINE [Concomitant]
     Active Substance: NIFEDIPINE
  5. PERCOCET [Concomitant]
     Active Substance: ACETAMINOPHEN\OXYCODONE HYDROCHLORIDE
  6. PREDNISONE [Concomitant]
     Active Substance: PREDNISONE

REACTIONS (2)
  - Brain operation [Unknown]
  - Therapy interrupted [Unknown]
